FAERS Safety Report 13412512 (Version 4)
Quarter: 2022Q3

REPORT INFORMATION
  Report Type: Spontaneous
  Country: US (occurrence: US)
  Receive Date: 20170406
  Receipt Date: 20220812
  Transmission Date: 20221026
  Serious: No
  Sender: FDA-Public Use
  Company Number: US-JNJFOC-20170309205

PATIENT
  Sex: Male

DRUGS (3)
  1. RISPERDAL [Suspect]
     Active Substance: RISPERIDONE
     Indication: Autism spectrum disorder
     Dosage: 02 MG AND UNSPECIFIED DOSE
     Route: 048
     Dates: start: 20000601, end: 20090414
  2. RISPERDAL [Suspect]
     Active Substance: RISPERIDONE
     Dosage: 02 MG AND UNSPECIFIED DOSE
     Route: 048
     Dates: end: 20130228
  3. RISPERIDONE [Suspect]
     Active Substance: RISPERIDONE
     Indication: Autism spectrum disorder
     Dosage: VARYING DOSES OF 02 AND 03 MG
     Route: 048
     Dates: start: 20130108, end: 20130228

REACTIONS (4)
  - Increased appetite [Recovering/Resolving]
  - Gynaecomastia [Unknown]
  - Emotional disorder [Unknown]
  - Drug ineffective [Unknown]
